FAERS Safety Report 15880976 (Version 2)
Quarter: 2019Q1

REPORT INFORMATION
  Report Type: Spontaneous
  Country: CZ (occurrence: CZ)
  Receive Date: 20190128
  Receipt Date: 20190130
  Transmission Date: 20190417
  Serious: Yes (Death, Other)
  Sender: FDA-Public Use
  Company Number: CZ-ELI_LILLY_AND_COMPANY-CZ201901011646

PATIENT
  Age: 74 Year
  Sex: Male

DRUGS (6)
  1. PEMETREXED. [Suspect]
     Active Substance: PEMETREXED
     Indication: ADENOCARCINOMA
     Dosage: UNK UNK, UNKNOWN
     Route: 065
     Dates: start: 201405
  2. NINTEDANIB [Suspect]
     Active Substance: NINTEDANIB
     Indication: ADENOCARCINOMA
     Dosage: 150 MG, BID
     Route: 048
     Dates: start: 201410, end: 201502
  3. DOCETAXEL. [Suspect]
     Active Substance: DOCETAXEL
     Indication: ADENOCARCINOMA
     Dosage: 80 MG/M2, UNKNOWN
     Route: 065
     Dates: start: 201410, end: 201502
  4. ERLOTINIB [Suspect]
     Active Substance: ERLOTINIB
     Indication: LUNG NEOPLASM MALIGNANT
  5. ERLOTINIB [Suspect]
     Active Substance: ERLOTINIB
     Indication: ADENOCARCINOMA
     Dosage: UNK, UNKNOWN
     Route: 065
  6. CISPLATIN. [Suspect]
     Active Substance: CISPLATIN
     Indication: ADENOCARCINOMA
     Dosage: UNK UNK, UNKNOWN
     Route: 065
     Dates: start: 201405

REACTIONS (7)
  - Bone marrow toxicity [Fatal]
  - Neutropenia [Fatal]
  - General physical health deterioration [Fatal]
  - Infection [Fatal]
  - Condition aggravated [Fatal]
  - Malignant neoplasm progression [Fatal]
  - Anaemia [Fatal]

NARRATIVE: CASE EVENT DATE: 201410
